FAERS Safety Report 23315369 (Version 1)
Quarter: 2023Q4

REPORT INFORMATION
  Report Type: Spontaneous
  Country: US (occurrence: None)
  Receive Date: 20231218
  Receipt Date: 20231218
  Transmission Date: 20240109
  Serious: No
  Sender: FDA-Public Use
  Company Number: None

PATIENT

DRUGS (1)
  1. OLANZAPINE [Suspect]
     Active Substance: OLANZAPINE

REACTIONS (7)
  - Drug hypersensitivity [None]
  - Weight increased [None]
  - Drug reaction with eosinophilia and systemic symptoms [None]
  - Wrong product administered [None]
  - Gait disturbance [None]
  - Blister [None]
  - Brain injury [None]

NARRATIVE: CASE EVENT DATE: 20230125
